FAERS Safety Report 9408852 (Version 3)
Quarter: 2013Q4

REPORT INFORMATION
  Report Type: Spontaneous
  Country: JP (occurrence: JP)
  Receive Date: 20130719
  Receipt Date: 20131015
  Transmission Date: 20140711
  Serious: Yes (Other)
  Sender: FDA-Public Use
  Company Number: JP-ROCHE-1249974

PATIENT
  Age: 42 Year
  Sex: Female
  Weight: 47 kg

DRUGS (8)
  1. MIRCERA [Suspect]
     Indication: NEPHROGENIC ANAEMIA
     Dosage: 140-200 MCG (GRADUALLY INCREASE)
     Route: 042
     Dates: start: 20130112
  2. PARIET [Concomitant]
     Indication: GASTRIC ANTRAL VASCULAR ECTASIA
     Route: 048
  3. FOSRENOL [Concomitant]
     Indication: HYPERPHOSPHATAEMIA
     Route: 048
     Dates: start: 20110623
  4. LEVOCARNITINE [Concomitant]
     Indication: MUSCLE SPASMS
     Dosage: DRUG NAME:L-CARTIN
     Route: 048
     Dates: start: 20130425
  5. ALFAROL [Concomitant]
     Indication: HYPERPARATHYROIDISM SECONDARY
     Route: 048
     Dates: start: 20121220
  6. CINACALCET HYDROCHLORIDE [Concomitant]
     Indication: HYPERPARATHYROIDISM SECONDARY
     Dosage: DRUG NAME: REGPARA
     Route: 048
     Dates: start: 20111103
  7. FERROMIA [Concomitant]
     Indication: ANAEMIA
     Route: 048
     Dates: start: 20120927
  8. PRECIPITATED CALCIUM CARBONATE [Concomitant]
     Indication: HYPERPHOSPHATAEMIA
     Route: 048
     Dates: start: 20120927

REACTIONS (1)
  - Anaemia [Recovering/Resolving]
